FAERS Safety Report 26211120 (Version 1)
Quarter: 2025Q4

REPORT INFORMATION
  Report Type: Other
  Country: EU (occurrence: EU)
  Receive Date: 20251230
  Receipt Date: 20251230
  Transmission Date: 20260117
  Serious: Yes (Other)
  Sender: ASPEN
  Company Number: EU-CHEPLA-2025014070

PATIENT

DRUGS (7)
  1. DEXAMETHASONE [Suspect]
     Active Substance: DEXAMETHASONE
     Indication: Prophylaxis of nausea and vomiting
     Dosage: 12 MILLIGRAM, (DAY 1)
     Route: 065
  2. DEXAMETHASONE [Suspect]
     Active Substance: DEXAMETHASONE
     Dosage: 4MG TWICE DAILY (DAY 2, 3 AND 4)
     Route: 065
  3. DEXAMETHASONE [Suspect]
     Active Substance: DEXAMETHASONE
     Dosage: 20 MILLIGRAM
     Route: 065
  4. DOXORUBICIN [Suspect]
     Active Substance: DOXORUBICIN
     Indication: Invasive lobular breast carcinoma
     Dosage: UNK
     Route: 065
  5. CYCLOPHOSPHAMIDE [Suspect]
     Active Substance: CYCLOPHOSPHAMIDE
     Indication: Invasive lobular breast carcinoma
     Dosage: UNK
     Route: 065
  6. PACLITAXEL [Suspect]
     Active Substance: PACLITAXEL
     Indication: Invasive lobular breast carcinoma
     Dosage: WEEKLY
     Route: 042
  7. PEGFILGRASTIM [Concomitant]
     Active Substance: PEGFILGRASTIM
     Indication: Invasive lobular breast carcinoma
     Dosage: UNK
     Route: 065

REACTIONS (6)
  - Hypoxia [Unknown]
  - Pneumocystis jirovecii pneumonia [Unknown]
  - Escherichia bacteraemia [Unknown]
  - Tachypnoea [Unknown]
  - Malaise [Unknown]
  - Lymphopenia [Unknown]
